FAERS Safety Report 7577518-6 (Version None)
Quarter: 2011Q2

REPORT INFORMATION
  Report Type: 
  Country: None (occurrence: None)
  Receive Date: 20110621
  Receipt Date: 20110608
  Transmission Date: 20111010
  Serious: Yes (Other)
  Sender: FDA-Public Use
  Company Number: DSJ-2011-04886

PATIENT
  Age: 79 Year
  Sex: Male
  Weight: 65 kg

DRUGS (5)
  1. OLMESARTAN MEDOXOMIL [Suspect]
     Indication: ESSENTIAL HYPERTENSION
     Dosage: 5 MG, PER ORAL; 20 MG, PER ORAL, 10 MG , PER ORAL
     Route: 048
     Dates: start: 20100115, end: 20100720
  2. OLMESARTAN MEDOXOMIL [Suspect]
     Indication: ESSENTIAL HYPERTENSION
     Dosage: 5 MG, PER ORAL; 20 MG, PER ORAL, 10 MG , PER ORAL
     Route: 048
     Dates: start: 20100721
  3. OLMESARTAN MEDOXOMIL [Suspect]
     Indication: ESSENTIAL HYPERTENSION
     Dosage: 5 MG, PER ORAL; 20 MG, PER ORAL, 10 MG , PER ORAL
     Route: 048
     Dates: start: 20091218, end: 20100114
  4. URIEF (SILODOSIN) (SILODOSIN) [Suspect]
     Indication: PRODUCT USED FOR UNKNOWN INDICATION
     Dosage: 8 MG, UNKNOWN
     Dates: start: 20091204
  5. ATELEC (CLINIDIPINE)(CLINIDIPINE) [Concomitant]

REACTIONS (1)
  - ORTHOSTATIC HYPOTENSION [None]
